FAERS Safety Report 7270240-5 (Version None)
Quarter: 2011Q1

REPORT INFORMATION
  Report Type: 
  Country: None (occurrence: None)
  Receive Date: 20110202
  Receipt Date: 20110126
  Transmission Date: 20110831
  Serious: Yes (Other)
  Sender: FDA-Public Use
  Company Number: US-AMGEN-USASP2011005034

PATIENT
  Age: 72 Year
  Sex: Male
  Weight: 126.8 kg

DRUGS (5)
  1. CISPLATIN [Concomitant]
     Dosage: 70 MG/M2, Q2WK
     Dates: start: 20101207, end: 20110120
  2. DOXORUBICIN [Concomitant]
     Dosage: 30 MG/M2, Q2WK
     Dates: start: 20101207, end: 20110120
  3. NEULASTA [Suspect]
     Indication: CHEMOTHERAPY
     Dosage: 6 MG, Q2WK
     Route: 058
     Dates: start: 20101207, end: 20110120
  4. METHOTREXATE [Concomitant]
     Dosage: 30 MG/M2, Q2WK
     Dates: start: 20101207, end: 20110120
  5. VINBLASTINE [Concomitant]
     Dosage: 3 MG/M2, Q2WK
     Dates: start: 20101207, end: 20110120

REACTIONS (1)
  - NEUTROPENIA [None]
